FAERS Safety Report 11485890 (Version 2)
Quarter: 2015Q4

REPORT INFORMATION
  Report Type: Other
  Country: US (occurrence: US)
  Receive Date: 20150910
  Receipt Date: 20151117
  Transmission Date: 20160304
  Serious: Yes (Hospitalization)
  Sender: FDA-Public Use
  Company Number: US-LUPIN PHARMACEUTICALS INC.-E2B_00003964

PATIENT
  Sex: Female
  Weight: 77.18 kg

DRUGS (1)
  1. ETHAMBUTOL HYDROCHLORIDE TABLETS USP 400MG [Suspect]
     Active Substance: ETHAMBUTOL HYDROCHLORIDE
     Indication: LUNG DISORDER
     Dosage: 1200 MG DAILY
     Dates: start: 201408, end: 201506

REACTIONS (1)
  - Optic nerve injury [Not Recovered/Not Resolved]
